FAERS Safety Report 19157385 (Version 2)
Quarter: 2022Q1

REPORT INFORMATION
  Report Type: Spontaneous
  Country: US (occurrence: US)
  Receive Date: 20210420
  Receipt Date: 20220214
  Transmission Date: 20220423
  Serious: Yes (Hospitalization, Other)
  Sender: FDA-Public Use
  Company Number: US-GLAXOSMITHKLINE-US2021GSK087062

PATIENT
  Sex: Male

DRUGS (3)
  1. RANITIDINE HYDROCHLORIDE [Suspect]
     Active Substance: RANITIDINE HYDROCHLORIDE
     Indication: Product used for unknown indication
     Dosage: UNK
     Route: 065
  2. ZANTAC [Suspect]
     Active Substance: RANITIDINE HYDROCHLORIDE
     Indication: Dyspepsia
     Dosage: UNK, QD
     Route: 065
     Dates: start: 201707, end: 201805
  3. RANITIDINE [Suspect]
     Active Substance: RANITIDINE
     Indication: Dyspepsia
     Dosage: UNK, QD
     Route: 065
     Dates: start: 201707, end: 201805

REACTIONS (28)
  - Urinary retention [Unknown]
  - Hydronephrosis [Unknown]
  - Renal impairment [Unknown]
  - Neoplasm malignant [Unknown]
  - Renal cancer [Unknown]
  - Chronic kidney disease [Unknown]
  - Acute kidney injury [Unknown]
  - Transitional cell cancer of the renal pelvis and ureter [Unknown]
  - Renal failure [Unknown]
  - Renal atrophy [Unknown]
  - Urinary tract obstruction [Unknown]
  - Ureteric cancer [Unknown]
  - Nephrolithiasis [Unknown]
  - Ureterolithiasis [Unknown]
  - Proteinuria [Unknown]
  - Prostatomegaly [Unknown]
  - Single functional kidney [Unknown]
  - Oliguria [Unknown]
  - Renal disorder [Unknown]
  - Ureteral disorder [Unknown]
  - Renal mass [Unknown]
  - Ureteral spasm [Unknown]
  - Nocturia [Unknown]
  - Urinary hesitation [Unknown]
  - Dysuria [Unknown]
  - Urine flow decreased [Unknown]
  - Lower urinary tract symptoms [Unknown]
  - Pollakiuria [Unknown]
